FAERS Safety Report 4532012-1 (Version None)
Quarter: 2004Q4

REPORT INFORMATION
  Report Type: 
  Country: None (occurrence: None)
  Receive Date: 20041220
  Receipt Date: 20041213
  Transmission Date: 20050328
  Serious: Yes (Hospitalization)
  Sender: FDA-Public Use
  Company Number: US-GLAXOSMITHKLINE-A0537080A

PATIENT
  Age: 6 Year
  Sex: Male

DRUGS (2)
  1. AUGMENTIN '125' [Suspect]
     Indication: LYMPHATIC DISORDER
     Route: 048
     Dates: start: 20020101
  2. NO CONCURRENT MEDICATION [Concomitant]

REACTIONS (1)
  - NEPHROTIC SYNDROME [None]
